FAERS Safety Report 9099284 (Version 1)
Quarter: 2013Q1

REPORT INFORMATION
  Report Type: Spontaneous
  Country: DE (occurrence: DE)
  Receive Date: 20130213
  Receipt Date: 20130213
  Transmission Date: 20140127
  Serious: Yes (Hospitalization)
  Sender: FDA-Public Use
  Company Number: PHHY2013DE013263

PATIENT
  Age: 52 Year
  Sex: Male

DRUGS (1)
  1. ACLASTA [Suspect]
     Indication: BONE MARROW OEDEMA
     Dosage: UNK UKN, UNK
     Route: 042
     Dates: start: 20130205

REACTIONS (10)
  - Chest pain [Unknown]
  - Gait disturbance [Unknown]
  - Arthralgia [Unknown]
  - Dizziness [Unknown]
  - Dyspnoea [Unknown]
  - Pain [Unknown]
  - Screaming [Unknown]
  - Myalgia [Unknown]
  - Anxiety [Unknown]
  - Nausea [Unknown]
